FAERS Safety Report 13334205 (Version 2)
Quarter: 2017Q2

REPORT INFORMATION
  Report Type: Spontaneous
  Country: US (occurrence: US)
  Receive Date: 20170313
  Receipt Date: 20170421
  Transmission Date: 20170830
  Serious: Yes (Other)
  Sender: FDA-Public Use
  Company Number: US-BEH-2017078697

PATIENT
  Age: 9 Year
  Sex: Female
  Weight: 34.14 kg

DRUGS (1)
  1. HIZENTRA [Suspect]
     Active Substance: HUMAN IMMUNOGLOBULIN G
     Indication: HYPOGAMMAGLOBULINAEMIA
     Dosage: 5 G, UNK
     Route: 058
     Dates: start: 20141223

REACTIONS (4)
  - Erythema [Unknown]
  - Pruritus [Unknown]
  - Abdominal distension [Unknown]
  - Injection site nodule [Unknown]
